FAERS Safety Report 9383589 (Version 3)
Quarter: 2013Q3

REPORT INFORMATION
  Report Type: Spontaneous
  Country: US (occurrence: US)
  Receive Date: 20130704
  Receipt Date: 20130821
  Transmission Date: 20140515
  Serious: Yes (Hospitalization, Other)
  Sender: FDA-Public Use
  Company Number: US-PFIZER INC-2013197942

PATIENT
  Age: 16 Year
  Sex: Female

DRUGS (1)
  1. ZOLOFT [Suspect]
     Indication: HEADACHE
     Dosage: 50 MG, UNK
     Route: 048
     Dates: start: 201306, end: 201307

REACTIONS (3)
  - Off label use [Recovering/Resolving]
  - Suicidal ideation [Recovering/Resolving]
  - Emotional disorder [Recovering/Resolving]
